FAERS Safety Report 6037840-1 (Version None)
Quarter: 2009Q1

REPORT INFORMATION
  Report Type: 
  Country: None (occurrence: None)
  Receive Date: 20090115
  Receipt Date: 20090113
  Transmission Date: 20090719
  Serious: Yes (Death, Other)
  Sender: FDA-Public Use
  Company Number: GB-RANBAXY-2008RR-19702

PATIENT
  Age: 65 Year
  Sex: Male

DRUGS (2)
  1. AMOXICILLIN + CLAVULANATE POTASSIUM [Suspect]
     Indication: INFECTION
     Dosage: 625 MG, UNK
     Route: 048
  2. AMOXICILLIN + CLAVULANATE POTASSIUM [Suspect]
     Dosage: 1200 MG, UNK
     Route: 042

REACTIONS (6)
  - HEPATIC FAILURE [None]
  - HEPATITIS [None]
  - HEPATOTOXICITY [None]
  - JAUNDICE [None]
  - MALAISE [None]
  - SEPSIS [None]
